FAERS Safety Report 7201918-7 (Version None)
Quarter: 2010Q4

REPORT INFORMATION
  Report Type: 
  Country: None (occurrence: None)
  Receive Date: 20101229
  Receipt Date: 20101217
  Transmission Date: 20110411
  Serious: Yes (Other)
  Sender: FDA-Public Use
  Company Number: AU-PFIZER INC-2010144011

PATIENT
  Age: 60 Year
  Sex: Male

DRUGS (1)
  1. PRISTIQ [Suspect]
     Indication: DEPRESSION
     Dosage: DAILY
     Route: 048
     Dates: end: 20100101

REACTIONS (2)
  - PERSONALITY CHANGE [None]
  - SLEEP TERROR [None]
